FAERS Safety Report 15697310 (Version 1)
Quarter: 2018Q4

REPORT INFORMATION
  Report Type: Spontaneous
  Country: None (occurrence: US)
  Receive Date: 20181206
  Receipt Date: 20181206
  Transmission Date: 20190205
  Serious: No
  Sender: FDA-Public Use
  Company Number: US-SHIRE-US201847352

PATIENT
  Sex: Female

DRUGS (1)
  1. GATTEX [Suspect]
     Active Substance: TEDUGLUTIDE\WATER
     Indication: SHORT-BOWEL SYNDROME
     Dosage: 0.442 UNK, 1X/DAY:QD
     Route: 065
     Dates: start: 20181014

REACTIONS (2)
  - Vomiting [Unknown]
  - Muscle spasms [Unknown]
